FAERS Safety Report 8450096-5 (Version None)
Quarter: 2012Q2

REPORT INFORMATION
  Report Type: 
  Country: None (occurrence: None)
  Receive Date: 20120614
  Receipt Date: 20120614
  Transmission Date: 20120825
  Serious: Yes (Life-Threatening)
  Sender: FDA-Public Use
  Company Number: None

PATIENT
  Sex: Male
  Weight: 86.1834 kg

DRUGS (1)
  1. RANIBIZUMAB 0.5 MG [GENENTECH] [Suspect]
     Indication: DIABETIC RETINAL OEDEMA
     Dosage: INTRAVITREAL Q MONTH

REACTIONS (1)
  - MYOCARDIAL INFARCTION [None]
